FAERS Safety Report 6425212-7 (Version None)
Quarter: 2009Q4

REPORT INFORMATION
  Report Type: 
  Country: None (occurrence: None)
  Receive Date: 20091030
  Receipt Date: 20091030
  Transmission Date: 20100525
  Serious: No
  Sender: FDA-Public Use
  Company Number: None

PATIENT
  Sex: Female
  Weight: 41 kg

DRUGS (15)
  1. IFOSFAMIDE [Suspect]
     Indication: EWING'S SARCOMA
     Dosage: 2300 Q24H X 5 DOSES IV
     Route: 042
     Dates: start: 20081221, end: 20081225
  2. IFOSFAMIDE [Suspect]
     Indication: PRIMITIVE NEUROECTODERMAL TUMOUR
     Dosage: 2300 Q24H X 5 DOSES IV
     Route: 042
     Dates: start: 20081221, end: 20081225
  3. ACETAMINOPHEN [Concomitant]
  4. ACETAMINOPHEN W/ CODEINE TAB [Concomitant]
  5. DIPHENHYDRAMINE [Concomitant]
  6. ETOPOSIDE [Concomitant]
  7. HEPARIN LOCK-FLUSH [Concomitant]
  8. LORAZEPAM [Concomitant]
  9. MESNA [Concomitant]
  10. MORPHINE [Concomitant]
  11. ONDANSETRON [Concomitant]
  12. POTASSIUM PHOSHATE-SODIUM PHOSPHATE PACKETS [Concomitant]
  13. POTASSIUM PHOSPHATES [Concomitant]
  14. SULFAMETHOXAZOLE AND TRIMETHOPRIM [Concomitant]
  15. VINCRISTINE [Concomitant]

REACTIONS (4)
  - AGITATION [None]
  - COMMUNICATION DISORDER [None]
  - MYOCLONUS [None]
  - PERSONALITY CHANGE [None]
